FAERS Safety Report 5017812-6 (Version None)
Quarter: 2006Q2

REPORT INFORMATION
  Report Type: 
  Country: None (occurrence: None)
  Receive Date: 20060605
  Receipt Date: 20060424
  Transmission Date: 20061013
  Serious: Yes (Hospitalization)
  Sender: FDA-Public Use
  Company Number: 2006AP01934

PATIENT
  Age: 29292 Day
  Sex: Female
  Weight: 29 kg

DRUGS (20)
  1. DIPRIVAN [Suspect]
     Indication: INDUCTION OF ANAESTHESIA
     Route: 042
     Dates: start: 20060420, end: 20060420
  2. DIPRIVAN [Suspect]
     Indication: MAINTENANCE OF ANAESTHESIA
     Route: 042
     Dates: start: 20060420, end: 20060420
  3. VAGOSTIGMIN [Suspect]
     Indication: HYPOTONIA
     Route: 042
     Dates: start: 20060420, end: 20060420
  4. KANAMYCIN [Concomitant]
     Indication: PREMEDICATION
     Route: 048
     Dates: start: 20060418, end: 20060420
  5. CARBOCAIN [Concomitant]
     Indication: EPIDURAL ANAESTHESIA
     Route: 008
     Dates: start: 20060420, end: 20060420
  6. FENTANEST [Concomitant]
     Indication: ANALGESIC THERAPY
     Route: 042
     Dates: start: 20060420, end: 20060420
  7. MUSCULAX [Concomitant]
     Indication: MUSCLE RELAXANT THERAPY
     Route: 042
     Dates: start: 20060420, end: 20060420
  8. SEVOFRANE [Concomitant]
     Indication: MAINTENANCE OF ANAESTHESIA
     Route: 055
     Dates: start: 20060420, end: 20060420
  9. EFFORTIL [Concomitant]
     Indication: HYPOTENSION
     Route: 042
     Dates: start: 20060420, end: 20060420
  10. ATROPINE SULFATE [Concomitant]
     Route: 042
     Dates: start: 20060420, end: 20060420
  11. ATROPINE SULFATE [Concomitant]
     Route: 065
     Dates: start: 20060420, end: 20060420
  12. MORPHINE [Concomitant]
     Indication: ANALGESIC THERAPY
     Route: 008
     Dates: start: 20060420, end: 20060420
  13. MORPHINE [Concomitant]
     Route: 008
     Dates: start: 20060420, end: 20060420
  14. NALOXONE HCL [Concomitant]
     Indication: RESPIRATORY DEPRESSION
     Route: 042
     Dates: start: 20060420, end: 20060420
  15. MEYLON [Concomitant]
     Indication: ACIDOSIS
     Route: 042
     Dates: start: 20060420, end: 20060420
  16. DOPRAM [Concomitant]
     Indication: RESPIRATORY DEPRESSION
     Route: 042
     Dates: start: 20060420, end: 20060420
  17. ANEXATE [Concomitant]
     Indication: DELAYED RECOVERY FROM ANAESTHESIA
     Route: 042
     Dates: start: 20060420, end: 20060420
  18. LASIX [Concomitant]
     Indication: POLYURIA
     Route: 042
     Dates: start: 20060420, end: 20060420
  19. ANAPEINE [Concomitant]
     Indication: EPIDURAL ANAESTHESIA
     Route: 008
     Dates: start: 20060420, end: 20060420
  20. ANAPEINE [Concomitant]
     Route: 008
     Dates: start: 20060420, end: 20060420

REACTIONS (8)
  - ACCIDENTAL OVERDOSE [None]
  - ATRIAL FIBRILLATION [None]
  - ATRIOVENTRICULAR BLOCK [None]
  - BLOOD PRESSURE DECREASED [None]
  - DELAYED RECOVERY FROM ANAESTHESIA [None]
  - RENAL IMPAIRMENT [None]
  - SINOATRIAL BLOCK [None]
  - SINUS ARRHYTHMIA [None]
